FAERS Safety Report 25255616 (Version 2)
Quarter: 2025Q3

REPORT INFORMATION
  Report Type: Spontaneous
  Country: US (occurrence: US)
  Receive Date: 20250430
  Receipt Date: 20250730
  Transmission Date: 20251021
  Serious: No
  Sender: MANKIND PHARMA
  Company Number: US-MankindUS-000365

PATIENT

DRUGS (1)
  1. CYANOCOBALAMIN [Suspect]
     Active Substance: CYANOCOBALAMIN
     Indication: Product used for unknown indication

REACTIONS (3)
  - Myalgia [Unknown]
  - Back pain [Unknown]
  - Pain in extremity [Unknown]
